FAERS Safety Report 11685040 (Version 1)
Quarter: 2015Q4

REPORT INFORMATION
  Report Type: Spontaneous
  Country: US (occurrence: US)
  Receive Date: 20151030
  Receipt Date: 20151030
  Transmission Date: 20160304
  Serious: Yes (Hospitalization)
  Sender: FDA-Public Use
  Company Number: US-ROCHE-1651621

PATIENT
  Age: 78 Year
  Sex: Male

DRUGS (6)
  1. LEVAQUIN [Suspect]
     Active Substance: LEVOFLOXACIN
     Indication: PNEUMONIA
     Route: 065
  2. DOCUSATE SODIUM. [Concomitant]
     Active Substance: DOCUSATE SODIUM
  3. VESICARE [Suspect]
     Active Substance: SOLIFENACIN SUCCINATE
     Indication: URINARY INCONTINENCE
     Route: 048
     Dates: start: 2013
  4. ERYTHROMYCIN. [Concomitant]
     Active Substance: ERYTHROMYCIN
  5. TAMIFLU [Suspect]
     Active Substance: OSELTAMIVIR PHOSPHATE
     Indication: INFLUENZA
     Route: 065
  6. BENADRYL [Concomitant]
     Active Substance: DIPHENHYDRAMINE HYDROCHLORIDE

REACTIONS (3)
  - Influenza [Unknown]
  - Pneumonia [Unknown]
  - Rash [Recovered/Resolved]

NARRATIVE: CASE EVENT DATE: 201501
